FAERS Safety Report 14211677 (Version 2)
Quarter: 2018Q1

REPORT INFORMATION
  Report Type: Spontaneous
  Country: US (occurrence: US)
  Receive Date: 20171122
  Receipt Date: 20180119
  Transmission Date: 20180508
  Serious: No
  Sender: FDA-Public Use
  Company Number: US-PFIZER INC-2017499142

PATIENT
  Age: 13 Year
  Sex: Female
  Weight: 45 kg

DRUGS (2)
  1. EUCRISA [Suspect]
     Active Substance: CRISABOROLE
     Indication: ECZEMA
     Dosage: UNK, 2X/DAY
     Route: 061
     Dates: start: 20170814, end: 20171110
  2. EUCRISA [Suspect]
     Active Substance: CRISABOROLE
     Indication: DERMATITIS ATOPIC
     Dosage: APPLY IN A THIN LAYER TO AFFECTED AREA, 2X/DAY
     Route: 061
     Dates: end: 201711

REACTIONS (7)
  - Skin hyperpigmentation [Recovered/Resolved]
  - Skin warm [Recovered/Resolved]
  - Application site pain [Unknown]
  - Pruritus [Recovered/Resolved]
  - Application site pruritus [Unknown]
  - Skin abrasion [Recovering/Resolving]
  - Application site exfoliation [Unknown]

NARRATIVE: CASE EVENT DATE: 20171110
